FAERS Safety Report 6491407-X (Version None)
Quarter: 2009Q4

REPORT INFORMATION
  Report Type: 
  Country: None (occurrence: None)
  Receive Date: 20091211
  Receipt Date: 20091130
  Transmission Date: 20100525
  Serious: Yes (Disabling, Other)
  Sender: FDA-Public Use
  Company Number: GB-PFIZER INC-2009279689

PATIENT
  Age: 66 Year
  Sex: Female

DRUGS (2)
  1. LYRICA [Suspect]
     Indication: NECK PAIN
     Dosage: UNK
     Route: 048
     Dates: start: 20090605, end: 20090626
  2. MORPHINE [Concomitant]
     Indication: PAIN
     Dosage: UNK
     Route: 062

REACTIONS (5)
  - ANXIETY [None]
  - MUSCLE SPASMS [None]
  - NERVOUSNESS [None]
  - SURGERY [None]
  - VISION BLURRED [None]
